FAERS Safety Report 5816575-1 (Version None)
Quarter: 2008Q3

REPORT INFORMATION
  Report Type: 
  Country: None (occurrence: None)
  Receive Date: 20080717
  Receipt Date: 20071030
  Transmission Date: 20090109
  Serious: Yes (Other)
  Sender: FDA-Public Use
  Company Number: 2007SP021970

PATIENT
  Sex: Male

DRUGS (4)
  1. INTEGRILIN [Suspect]
     Indication: DRUG USE FOR UNKNOWN INDICATION
  2. RETAVASE [Concomitant]
  3. BIVALIRUDIN [Concomitant]
  4. CLOPIDOGREL /01220702/ [Concomitant]

REACTIONS (1)
  - HAEMORRHAGE [None]
